FAERS Safety Report 8970095 (Version 1)
Quarter: 2012Q4

REPORT INFORMATION
  Report Type: 
  Country: US (occurrence: US)
  Receive Date: 20121218
  Receipt Date: 20121218
  Transmission Date: 20130627
  Serious: No
  Sender: FDA-Public Use
  Company Number: US-FOUGERA-2012FO001355

PATIENT
  Age: 67 Year
  Sex: Male

DRUGS (3)
  1. IMIQUIMOD [Suspect]
     Indication: ACTINIC KERATOSIS
     Dates: start: 201210
  2. SYNTHROID [Concomitant]
     Indication: THYROID DISORDER
  3. LIPITOR [Concomitant]
     Indication: BLOOD CHOLESTEROL

REACTIONS (4)
  - Inappropriate schedule of drug administration [Unknown]
  - Application site discharge [Recovered/Resolved]
  - Application site scab [Not Recovered/Not Resolved]
  - Lymphadenopathy [Recovering/Resolving]
